FAERS Safety Report 7001206-8 (Version None)
Quarter: 2010Q3

REPORT INFORMATION
  Report Type: 
  Country: None (occurrence: None)
  Receive Date: 20100920
  Receipt Date: 20070626
  Transmission Date: 20110219
  Serious: Yes (Other)
  Sender: FDA-Public Use
  Company Number: US-ASTRAZENECA-2006UW25493

PATIENT
  Sex: Female
  Weight: 84.4 kg

DRUGS (13)
  1. SEROQUEL [Suspect]
     Indication: DEPRESSION
     Dosage: 12.5-50 MG
     Route: 048
     Dates: start: 20040101, end: 20050421
  2. SEROQUEL [Suspect]
     Indication: SLEEP DISORDER
     Dosage: 12.5-50 MG
     Route: 048
     Dates: start: 20040101, end: 20050421
  3. SEROQUEL [Suspect]
     Indication: PANIC DISORDER
     Dosage: 12.5-50 MG
     Route: 048
     Dates: start: 20040101, end: 20050421
  4. RISPERDAL [Concomitant]
  5. KLONOPIN [Concomitant]
     Dosage: 0.5-1 MG
     Dates: start: 20041012
  6. PROZAC [Concomitant]
     Dosage: 50 MG AT AM, 20 MG B.I.D
     Dates: start: 20020528
  7. WELLBUTRIN [Concomitant]
     Dosage: 75-150 MG
     Dates: start: 20020528, end: 20041124
  8. LEXAPRO [Concomitant]
     Dates: start: 20040701
  9. CYTOMEL [Concomitant]
     Dates: start: 20041123
  10. SUDAFED 12 HOUR [Concomitant]
     Indication: NASAL CONGESTION
     Dosage: PRN
     Dates: start: 20041123
  11. ZYPREXA [Concomitant]
     Route: 048
     Dates: start: 20050421
  12. GLYBURIDE [Concomitant]
     Dates: start: 19870101
  13. INSULIN [Concomitant]
     Dates: start: 19870101

REACTIONS (2)
  - DIABETIC KETOACIDOSIS [None]
  - TYPE 1 DIABETES MELLITUS [None]
